FAERS Safety Report 23235898 (Version 3)
Quarter: 2024Q1

REPORT INFORMATION
  Report Type: Spontaneous
  Country: US (occurrence: US)
  Receive Date: 20231128
  Receipt Date: 20240122
  Transmission Date: 20240409
  Serious: No
  Sender: FDA-Public Use
  Company Number: US-PFIZER INC-PV202300132363

PATIENT
  Age: 74 Year
  Sex: Female

DRUGS (1)
  1. BRAFTOVI [Suspect]
     Active Substance: ENCORAFENIB
     Dosage: 300 MG (4X75MG), DAILY/TAKE 4 CAPSULES DAILY
     Route: 048

REACTIONS (1)
  - Nasopharyngitis [Unknown]
